FAERS Safety Report 12113916 (Version 1)
Quarter: 2016Q1

REPORT INFORMATION
  Report Type: Spontaneous
  Country: US (occurrence: None)
  Receive Date: 20160224
  Receipt Date: 20160224
  Transmission Date: 20160526
  Serious: Yes (Hospitalization)
  Sender: FDA-Public Use
  Company Number: None

PATIENT
  Age: 35 Year
  Sex: Female
  Weight: 82.6 kg

DRUGS (1)
  1. CISPLATIN. [Suspect]
     Active Substance: CISPLATIN
     Dates: end: 20160210

REACTIONS (8)
  - Pyrexia [None]
  - Blood urine present [None]
  - Ureteric obstruction [None]
  - Dysuria [None]
  - Abdominal pain lower [None]
  - Hydronephrosis [None]
  - Flank pain [None]
  - Pollakiuria [None]

NARRATIVE: CASE EVENT DATE: 20160214
